FAERS Safety Report 8766985 (Version 1)
Quarter: 2012Q4

REPORT INFORMATION
  Report Type: 
  Country: US (occurrence: US)
  Receive Date: 20120904
  Receipt Date: 20120904
  Transmission Date: 20130627
  Serious: No
  Sender: FDA-Public Use
  Company Number: US-JNJFOC-20120809175

PATIENT
  Age: 23 Year
  Sex: Male

DRUGS (3)
  1. INVEGA SUSTENNA [Suspect]
     Indication: SCHIZOAFFECTIVE DISORDER
     Route: 030
  2. ATIVAN [Concomitant]
     Route: 065
  3. SEROQUEL [Concomitant]
     Route: 065

REACTIONS (1)
  - Dizziness [Unknown]
